FAERS Safety Report 14568522 (Version 1)
Quarter: 2018Q1

REPORT INFORMATION
  Report Type: Spontaneous
  Country: US (occurrence: US)
  Receive Date: 20180223
  Receipt Date: 20180223
  Transmission Date: 20180509
  Serious: Yes (Hospitalization, Other)
  Sender: FDA-Public Use
  Company Number: US-TEVA-2018-US-861916

PATIENT
  Sex: Female

DRUGS (1)
  1. COPAXONE [Suspect]
     Active Substance: GLATIRAMER ACETATE
     Indication: MULTIPLE SCLEROSIS
     Dosage: UNKNOWN FORM STRENTH
     Route: 065

REACTIONS (9)
  - Injection site swelling [Unknown]
  - Myalgia [Unknown]
  - Injection site pain [Recovered/Resolved]
  - Multiple sclerosis [Unknown]
  - Schizophrenia [Unknown]
  - Thinking abnormal [Unknown]
  - Pain in extremity [Unknown]
  - Confusional state [Unknown]
  - Crying [Unknown]
